FAERS Safety Report 15407104 (Version 2)
Quarter: 2018Q3

REPORT INFORMATION
  Report Type: Spontaneous
  Country: US (occurrence: US)
  Receive Date: 20180920
  Receipt Date: 20180925
  Transmission Date: 20181010
  Serious: Yes (Other)
  Sender: FDA-Public Use
  Company Number: US-PFIZER INC-2018374858

PATIENT
  Age: 70 Year
  Sex: Female

DRUGS (1)
  1. GABAPENTIN. [Suspect]
     Active Substance: GABAPENTIN
     Indication: DIABETIC NEUROPATHY
     Dosage: 100MG THREE TIMES A DAY

REACTIONS (17)
  - Pain [Unknown]
  - Speech disorder [Unknown]
  - Malaise [Unknown]
  - Cough [Unknown]
  - Drug ineffective for unapproved indication [Unknown]
  - Insomnia [Unknown]
  - Pyrexia [Unknown]
  - Vision blurred [Unknown]
  - Pharyngeal disorder [Unknown]
  - Neuropathic arthropathy [Unknown]
  - Muscle spasms [Unknown]
  - Neuropathy peripheral [Unknown]
  - Peripheral swelling [Unknown]
  - Fall [Unknown]
  - Rotator cuff syndrome [Unknown]
  - Blindness [Unknown]
  - Pain in extremity [Unknown]
